FAERS Safety Report 21004842 (Version 1)
Quarter: 2022Q2

REPORT INFORMATION
  Report Type: Spontaneous
  Country: GB (occurrence: GB)
  Receive Date: 20220624
  Receipt Date: 20220624
  Transmission Date: 20220720
  Serious: Yes (Other)
  Sender: FDA-Public Use
  Company Number: GB-MHRA-MED-202206132034021490-JKFQL

PATIENT
  Age: 71 Year
  Sex: Male
  Weight: 95 kg

DRUGS (1)
  1. QUININE SULFATE [Suspect]
     Active Substance: QUININE SULFATE
     Indication: Muscle spasms
     Dosage: 200 MILLIGRAM DAILY; AT NIGHT; UNIT DOSE : 200 MG, FREQUENCY : 1 , FREQUENCY TIME : 1 DAYS, THERAPY
     Route: 065
     Dates: start: 20220528, end: 20220610

REACTIONS (5)
  - Abdominal pain upper [Recovering/Resolving]
  - Headache [Recovering/Resolving]
  - Asthenia [Recovering/Resolving]
  - Dyspnoea [Recovering/Resolving]
  - Nausea [Recovering/Resolving]

NARRATIVE: CASE EVENT DATE: 20220531
